FAERS Safety Report 7649561-X (Version None)
Quarter: 2011Q3

REPORT INFORMATION
  Report Type: 
  Country: None (occurrence: None)
  Receive Date: 20110802
  Receipt Date: 20101124
  Transmission Date: 20111222
  Serious: Yes (Other)
  Sender: FDA-Public Use
  Company Number: JP-JNJFOC-20101108880

PATIENT

DRUGS (1)
  1. ORTHOCLONE OKT3 [Suspect]
     Indication: ILL-DEFINED DISORDER
     Route: 041

REACTIONS (1)
  - CYTOMEGALOVIRUS TEST POSITIVE [None]
